FAERS Safety Report 7467892-3 (Version None)
Quarter: 2011Q2

REPORT INFORMATION
  Report Type: 
  Country: None (occurrence: None)
  Receive Date: 20110509
  Receipt Date: 20110127
  Transmission Date: 20111010
  Serious: No
  Sender: FDA-Public Use
  Company Number: US-ALEXION-A201100125

PATIENT
  Sex: Female

DRUGS (5)
  1. ACYCLOVIR [Concomitant]
     Dosage: UNK, PRN
  2. CYMBALTA [Concomitant]
     Indication: DEPRESSION
     Dosage: UNK, QD
  3. SOLIRIS [Suspect]
     Indication: PAROXYSMAL NOCTURNAL HAEMOGLOBINURIA
     Dosage: 900 MG, UNK
     Route: 042
     Dates: start: 20090301
  4. ZOFRAN [Concomitant]
     Indication: NAUSEA
     Dosage: UNK, PRN
  5. MICRONOR [Concomitant]
     Indication: ORAL CONTRACEPTION
     Dosage: UNK, QD

REACTIONS (1)
  - PHARYNGITIS STREPTOCOCCAL [None]
